FAERS Safety Report 24877230 (Version 1)
Quarter: 2025Q1

REPORT INFORMATION
  Report Type: Spontaneous
  Country: CN (occurrence: CN)
  Receive Date: 20250123
  Receipt Date: 20250123
  Transmission Date: 20250409
  Serious: Yes (Other)
  Sender: JIANGSU HANSOH PHARMACEUTICAL
  Company Number: CN-Jiangsu Hansoh Pharmaceutical Co., Ltd-2169622

PATIENT
  Age: 68 Year
  Sex: Female

DRUGS (3)
  1. AUMOLERTINIB MESYLATE [Suspect]
     Active Substance: AUMOLERTINIB MESYLATE
     Indication: Lung neoplasm malignant
  2. PEMETREXED DISODIUM [Suspect]
     Active Substance: PEMETREXED DISODIUM
     Dates: start: 20240926, end: 20250103
  3. BEVACIZUMAB [Suspect]
     Active Substance: BEVACIZUMAB
     Dates: start: 20241008, end: 20250103

REACTIONS (6)
  - White blood cell count decreased [Recovering/Resolving]
  - Rhinorrhoea [Unknown]
  - Productive cough [Unknown]
  - Pyrexia [Unknown]
  - Platelet count decreased [Recovering/Resolving]
  - Granulocyte count decreased [Recovering/Resolving]

NARRATIVE: CASE EVENT DATE: 20250105
